FAERS Safety Report 8731702 (Version 4)
Quarter: 2012Q4

REPORT INFORMATION
  Report Type: Report from Study
  Country: JP (occurrence: JP)
  Receive Date: 20120820
  Receipt Date: 20121101
  Transmission Date: 20130627
  Serious: Yes (Life-Threatening)
  Sender: FDA-Public Use
  Company Number: JP-PFIZER INC-2012197995

PATIENT
  Age: 57 Year
  Sex: Male
  Weight: 40.9 kg

DRUGS (13)
  1. XALKORI [Suspect]
     Indication: NON-SMALL CELL LUNG CANCER
     Dosage: 250 mg, 2x/day
     Route: 048
     Dates: start: 20120524, end: 20120615
  2. OXYCONTIN [Suspect]
     Indication: PAIN
     Dosage: 40 mg, 2x/day
     Dates: start: 20120606
  3. DECADRON [Suspect]
     Indication: PAIN
     Dosage: 2 mg, 1x/day
     Dates: start: 20120604
  4. LOXONIN [Concomitant]
     Dosage: 60 mg, 3x/day
     Dates: start: 20120602
  5. ALFAROL [Concomitant]
     Dosage: 0.5 ug, 1x/day
     Dates: start: 20120602
  6. PARIET [Concomitant]
     Dosage: 10 mg, 1x/day
     Dates: start: 20120602
  7. NOVAMIN [Concomitant]
     Dosage: 5 mg, 3x/day
     Dates: start: 20120602
  8. PRIMPERAN [Concomitant]
     Dosage: 5 mg, 2x/day
     Dates: start: 20120602
  9. ASPARA-CA [Concomitant]
     Dosage: 400 mg, 3x/day
     Dates: start: 20120607
  10. MAGNESIUM OXIDE [Concomitant]
     Dosage: 660 mg, 3x/day
     Dates: start: 20120607
  11. LENDORMIN [Concomitant]
     Dosage: 0.25 mg, 1x/day
     Dates: start: 20120608
  12. SERENACE [Concomitant]
     Dosage: 1.5 mg, 1x/day before sleep
     Dates: start: 20120612
  13. PETROLATUM [Concomitant]
     Dosage: UNK
     Dates: start: 20120614

REACTIONS (1)
  - Cholecystitis chronic [Recovered/Resolved]
